FAERS Safety Report 25318879 (Version 1)
Quarter: 2025Q2

REPORT INFORMATION
  Report Type: Report from Study
  Country: BR (occurrence: BR)
  Receive Date: 20250515
  Receipt Date: 20250515
  Transmission Date: 20250716
  Serious: Yes (Other)
  Sender: BIOGEN
  Company Number: BR-BIOGEN-2025BI01310725

PATIENT
  Age: 34 Year
  Sex: Female
  Weight: 61 kg

DRUGS (4)
  1. TYSABRI [Suspect]
     Active Substance: NATALIZUMAB
     Indication: Multiple sclerosis
     Route: 050
     Dates: start: 202310
  2. LOSARTAN [Concomitant]
     Active Substance: LOSARTAN
     Indication: Blood pressure measurement
     Route: 050
     Dates: start: 2018
  3. LOSARTAN [Concomitant]
     Active Substance: LOSARTAN
     Route: 050
     Dates: start: 202412
  4. PROPRANOLOL HYDROCHLORIDE [Concomitant]
     Active Substance: PROPRANOLOL HYDROCHLORIDE
     Indication: Blood pressure measurement
     Route: 050
     Dates: end: 202412

REACTIONS (4)
  - Cardiovascular symptom [Unknown]
  - Hypersensitivity [Recovered/Resolved with Sequelae]
  - Pain [Unknown]
  - Electric shock sensation [Unknown]

NARRATIVE: CASE EVENT DATE: 20231201
